FAERS Safety Report 5010309-9 (Version None)
Quarter: 2006Q2

REPORT INFORMATION
  Report Type: 
  Country: None (occurrence: None)
  Receive Date: 20060404
  Receipt Date: 20051205
  Transmission Date: 20061013
  Serious: No
  Sender: FDA-Public Use
  Company Number: US200512000989

PATIENT
  Age: 53 Year
  Sex: Female
  Weight: 91.6 kg

DRUGS (6)
  1. CYMBALTA [Suspect]
     Indication: IRRITABLE BOWEL SYNDROME
     Dosage: 30 MG, DAILY (1/D),
     Dates: start: 20051202, end: 20051201
  2. HYDROCHLOROTHIAZIDE [Concomitant]
  3. ENALAPRIL MALEATE [Concomitant]
  4. POTASSIUM (POTASSIUM) [Concomitant]
  5. RANITIDINE [Concomitant]
  6. ASPIRIN [Concomitant]

REACTIONS (10)
  - ANXIETY [None]
  - ASTHENIA [None]
  - DYSPEPSIA [None]
  - EYE PAIN [None]
  - FEELING HOT [None]
  - HEADACHE [None]
  - HEART RATE [None]
  - HYPERHIDROSIS [None]
  - HYPOAESTHESIA [None]
  - MUSCLE SPASMS [None]
